FAERS Safety Report 12244531 (Version 1)
Quarter: 2016Q2

REPORT INFORMATION
  Report Type: Spontaneous
  Country: US (occurrence: US)
  Receive Date: 20160407
  Receipt Date: 20160407
  Transmission Date: 20160815
  Serious: No
  Sender: FDA-Public Use
  Company Number: US-009507513-1603USA005317

PATIENT
  Age: 40 Year
  Sex: Female

DRUGS (4)
  1. KLONOPIN [Concomitant]
     Active Substance: CLONAZEPAM
  2. TEMODAR [Suspect]
     Active Substance: TEMOZOLOMIDE
     Dosage: 2ND, 5 DAY COURSE
     Route: 048
     Dates: start: 20160229
  3. PHENOBARBITAL. [Concomitant]
     Active Substance: PHENOBARBITAL
  4. OXYCODONE [Concomitant]
     Active Substance: OXYCODONE

REACTIONS (3)
  - Nausea [Recovered/Resolved]
  - Diarrhoea [Recovered/Resolved]
  - Feeding disorder [Recovered/Resolved]

NARRATIVE: CASE EVENT DATE: 20160301
